FAERS Safety Report 6301413-3 (Version None)
Quarter: 2009Q3

REPORT INFORMATION
  Report Type: 
  Country: None (occurrence: None)
  Receive Date: 20090805
  Receipt Date: 20090805
  Transmission Date: 20100115
  Serious: Yes (Hospitalization)
  Sender: FDA-Public Use
  Company Number: None

PATIENT
  Age: 56 Year
  Sex: Male

DRUGS (2)
  1. GEMCITABINE [Suspect]
     Indication: PANCREATIC CARCINOMA METASTATIC
     Dosage: 1000MG/M2 EVERY 2 WEEKS IV DRIP
     Route: 041
     Dates: start: 20090304, end: 20090730
  2. CAPECITABINE [Suspect]
     Indication: PANCREATIC CARCINOMA METASTATIC
     Dosage: 1000MG/M2 BID DAYS 1-7/14 PO
     Route: 048
     Dates: start: 20090304, end: 20090730

REACTIONS (11)
  - ANAEMIA [None]
  - DIARRHOEA [None]
  - DUODENAL ULCER [None]
  - EROSIVE OESOPHAGITIS [None]
  - FATIGUE [None]
  - JEJUNAL ULCER [None]
  - MELAENA [None]
  - NO THERAPEUTIC RESPONSE [None]
  - RECTAL HAEMORRHAGE [None]
  - REFLUX OESOPHAGITIS [None]
  - TREATMENT NONCOMPLIANCE [None]
